FAERS Safety Report 7586177-8 (Version None)
Quarter: 2011Q2

REPORT INFORMATION
  Report Type: 
  Country: None (occurrence: None)
  Receive Date: 20110630
  Receipt Date: 20110630
  Transmission Date: 20111010
  Serious: Yes (Death, Life-Threatening)
  Sender: FDA-Public Use
  Company Number: None

PATIENT
  Age: 61 Year
  Sex: Male

DRUGS (1)
  1. HEMODIALYSIS PRE MIX SOLUTION 4000ML IV 4% SODIUM CITRATE PHARMEDIUM [Suspect]
     Indication: RENAL FAILURE ACUTE
     Dosage: 4% SODIUM CITRATE 500/ML Q 5 HRS IV STERILE WATER 3500 ML
     Route: 042
     Dates: start: 20110619, end: 20110621

REACTIONS (1)
  - BLOOD SODIUM DECREASED [None]
